FAERS Safety Report 15306135 (Version 3)
Quarter: 2018Q4

REPORT INFORMATION
  Report Type: Spontaneous
  Country: US (occurrence: US)
  Receive Date: 20180822
  Receipt Date: 20180831
  Transmission Date: 20190204
  Serious: No
  Sender: FDA-Public Use
  Company Number: US-PFIZER INC-2018336709

PATIENT

DRUGS (1)
  1. ZOSYN IN GALAXY CONTAINERS [Suspect]
     Active Substance: PIPERACILLIN SODIUM\TAZOBACTAM SODIUM
     Dosage: 3.375 G, UNK

REACTIONS (1)
  - Diarrhoea [Unknown]
